FAERS Safety Report 21693370 (Version 1)
Quarter: 2022Q4

REPORT INFORMATION
  Report Type: Spontaneous
  Country: US (occurrence: US)
  Receive Date: 20221207
  Receipt Date: 20221207
  Transmission Date: 20230112
  Serious: No
  Sender: FDA-Public Use
  Company Number: US-SA-SAC20221206001464

PATIENT
  Sex: Female

DRUGS (9)
  1. DUPIXENT [Suspect]
     Active Substance: DUPILUMAB
     Indication: Dermatitis atopic
     Dosage: 300 MG, QOW
     Route: 058
     Dates: start: 20220630
  2. ASPIRIN [Concomitant]
     Active Substance: ASPIRIN
  3. BIOTIN [Concomitant]
     Active Substance: BIOTIN
  4. DULOXETINE [Concomitant]
     Active Substance: DULOXETINE
  5. FISH OIL [Concomitant]
     Active Substance: FISH OIL
  6. LUNESTA [Concomitant]
     Active Substance: ESZOPICLONE
  7. OXTELLAR XR [Concomitant]
     Active Substance: OXCARBAZEPINE
  8. POTASSIUM [Concomitant]
     Active Substance: POTASSIUM
  9. VITAMIN D NOS [Concomitant]
     Active Substance: VITAMIN D NOS

REACTIONS (2)
  - Urinary incontinence [Unknown]
  - Insomnia [Unknown]
